FAERS Safety Report 7466114-7 (Version None)
Quarter: 2011Q2

REPORT INFORMATION
  Report Type: 
  Country: None (occurrence: None)
  Receive Date: 20110505
  Receipt Date: 20110505
  Transmission Date: 20111010
  Serious: Yes (Hospitalization)
  Sender: FDA-Public Use
  Company Number: None

PATIENT
  Sex: Male
  Weight: 52.1637 kg

DRUGS (2)
  1. METOCLOPRAMIDE [Suspect]
     Indication: NAUSEA
     Dosage: ONE TABLET FOUR TIMES PER DAY PO
     Route: 048
     Dates: start: 20110428, end: 20110503
  2. METOCLOPRAMIDE [Suspect]
     Indication: VOMITING
     Dosage: ONE TABLET FOUR TIMES PER DAY PO
     Route: 048
     Dates: start: 20110428, end: 20110503

REACTIONS (2)
  - DYSKINESIA [None]
  - PAIN [None]
